FAERS Safety Report 9848323 (Version 1)
Quarter: 2014Q1

REPORT INFORMATION
  Report Type: Spontaneous
  Country: US (occurrence: None)
  Receive Date: 20140123
  Receipt Date: 20140123
  Transmission Date: 20141002
  Serious: Yes (Other)
  Sender: FDA-Public Use
  Company Number: None

PATIENT
  Age: 33 Year
  Sex: Female
  Weight: 68.6 kg

DRUGS (2)
  1. APIDRA SOLOSTAR INSULIN [Suspect]
     Indication: GESTATIONAL DIABETES
     Dosage: 10 UNITS WITH MEALS
     Route: 058
     Dates: start: 20131217, end: 20131226
  2. NPH HUMAN INSULIN (BUMULIN) [Concomitant]

REACTIONS (4)
  - Maternal exposure during pregnancy [None]
  - Preterm premature rupture of membranes [None]
  - Premature labour [None]
  - Premature delivery [None]
